FAERS Safety Report 6151512-4 (Version None)
Quarter: 2009Q2

REPORT INFORMATION
  Report Type: 
  Country: None (occurrence: None)
  Receive Date: 20090410
  Receipt Date: 20090406
  Transmission Date: 20091009
  Serious: Yes (Other)
  Sender: FDA-Public Use
  Company Number: US-AMGEN-US341701

PATIENT
  Age: 14 Year
  Sex: Female
  Weight: 57.1 kg

DRUGS (3)
  1. ENBREL [Suspect]
     Indication: JUVENILE ARTHRITIS
     Route: 058
     Dates: start: 20090128
  2. METHOTREXATE SODIUM [Suspect]
     Indication: JUVENILE ARTHRITIS
     Route: 058
  3. INSULIN [Concomitant]

REACTIONS (1)
  - HYPERGLYCAEMIA [None]
